FAERS Safety Report 4316003-1 (Version None)
Quarter: 2004Q1

REPORT INFORMATION
  Report Type: 
  Country: None (occurrence: None)
  Receive Date: 20040310
  Receipt Date: 20040226
  Transmission Date: 20041129
  Serious: Yes (Death)
  Sender: FDA-Public Use
  Company Number: 04P-167-0251893-00

PATIENT
  Age: 75 Year
  Sex: Female

DRUGS (10)
  1. DEPAKOTE [Suspect]
     Indication: MANIA
     Dosage: 250 MG, 3 IN 1 D, ORAL
     Route: 048
     Dates: start: 20040119
  2. DEPAKOTE [Suspect]
     Indication: PROPHYLAXIS
     Dosage: 250 MG, 3 IN 1 D, ORAL
     Route: 048
     Dates: start: 20040119
  3. THYROXINE [Concomitant]
  4. ASPIRIN [Concomitant]
  5. CEPHALEXIN [Concomitant]
  6. LITHIUM [Concomitant]
  7. PROCYCLIDINE [Concomitant]
  8. NITRAZEPAM [Concomitant]
  9. CLOPIXOL [Concomitant]
  10. CITALOPRAM [Concomitant]

REACTIONS (1)
  - CEREBROVASCULAR ACCIDENT [None]
